FAERS Safety Report 6581892-7 (Version None)
Quarter: 2010Q1

REPORT INFORMATION
  Report Type: 
  Country: None (occurrence: None)
  Receive Date: 20100215
  Receipt Date: 20100205
  Transmission Date: 20100710
  Serious: Yes (Hospitalization)
  Sender: FDA-Public Use
  Company Number: TR-ABBOTT-10P-161-0624454-00

PATIENT
  Age: 65 Year
  Sex: Female
  Weight: 130 kg

DRUGS (1)
  1. TARKA [Suspect]
     Indication: HYPERTENSION
     Dosage: 2/180 MG
     Route: 048

REACTIONS (3)
  - HYPOTHYROIDISM [None]
  - NODAL RHYTHM [None]
  - RENAL FAILURE ACUTE [None]
